FAERS Safety Report 9116185 (Version 1)
Quarter: 2013Q1

REPORT INFORMATION
  Report Type: Spontaneous
  Country: NO (occurrence: NO)
  Receive Date: 20130225
  Receipt Date: 20130225
  Transmission Date: 20140127
  Serious: Yes (Hospitalization)
  Sender: FDA-Public Use
  Company Number: NO-TEVA-386889ISR

PATIENT
  Age: 51 Year
  Sex: Female

DRUGS (11)
  1. CLARITHROMYCIN [Suspect]
     Indication: HELICOBACTER INFECTION
     Route: 048
     Dates: start: 20121126
  2. PREDNISOLON [Concomitant]
     Route: 048
  3. SPIRIX [Concomitant]
     Route: 048
  4. IMACILLIN [Concomitant]
     Route: 048
     Dates: start: 20121126
  5. INDERAL RETARD [Concomitant]
     Route: 048
  6. ETALPHA [Concomitant]
     Route: 048
  7. SANDIMMUN NEORAL [Concomitant]
     Route: 048
  8. ADALAT [Concomitant]
     Route: 048
  9. OMEPRAZOLE [Concomitant]
     Route: 048
  10. ARANESP [Concomitant]
     Route: 065
  11. NATRIUMKLORID NAF [Concomitant]
     Route: 048

REACTIONS (1)
  - Renal failure chronic [Not Recovered/Not Resolved]
